FAERS Safety Report 6177948-3 (Version None)
Quarter: 2009Q2

REPORT INFORMATION
  Report Type: 
  Country: None (occurrence: None)
  Receive Date: 20090504
  Receipt Date: 20090424
  Transmission Date: 20091009
  Serious: Yes (Hospitalization)
  Sender: FDA-Public Use
  Company Number: PH-MERCK-0903PHL00083

PATIENT
  Age: 56 Year
  Sex: Male

DRUGS (14)
  1. JANUVIA [Suspect]
     Indication: TYPE 2 DIABETES MELLITUS
     Route: 048
     Dates: start: 20090101, end: 20090101
  2. EXENATIDE [Concomitant]
     Indication: TYPE 2 DIABETES MELLITUS
     Route: 065
     Dates: end: 20090301
  3. EXENATIDE [Concomitant]
     Route: 065
     Dates: start: 20090301
  4. INSULIN, BIPHASIC ISOPHANE [INJECTION] [Concomitant]
     Indication: TYPE 2 DIABETES MELLITUS
     Route: 051
  5. INSULIN, BIPHASIC ISOPHANE [INJECTION] [Concomitant]
     Route: 051
  6. AMLODIPINE [Concomitant]
     Route: 048
  7. IRBESARTAN [Concomitant]
     Route: 048
  8. TRIMETAZIDINE HYDROCHLORIDE [Concomitant]
     Route: 065
  9. AMIODARONE HYDROCHLORIDE [Concomitant]
     Route: 065
  10. BUTHIAZIDE AND SPIRONOLACTONE [Concomitant]
     Route: 065
  11. ASCORBIC ACID AND VITAMIN B COMPLEX [Concomitant]
     Indication: VITAMIN SUPPLEMENTATION
     Route: 065
  12. ASPIRIN [Concomitant]
     Route: 048
  13. ALLOPURINOL [Concomitant]
     Route: 048
  14. ATORVASTATIN CALCIUM [Concomitant]
     Route: 065

REACTIONS (4)
  - DELIRIUM [None]
  - DRUG HYPERSENSITIVITY [None]
  - ELECTROLYTE IMBALANCE [None]
  - SLEEP DISORDER [None]
